FAERS Safety Report 4322450-4 (Version None)
Quarter: 2004Q1

REPORT INFORMATION
  Report Type: 
  Country: None (occurrence: None)
  Receive Date: 20040319
  Receipt Date: 20040220
  Transmission Date: 20041129
  Serious: Yes (Hospitalization, Other)
  Sender: FDA-Public Use
  Company Number: 200312025GDS

PATIENT
  Age: 42 Year
  Sex: Male

DRUGS (2)
  1. LIPOBAY (CERIVASTATIN SODIUM) [Suspect]
     Indication: BLOOD TRIGLYCERIDES INCREASED
     Dosage: ORAL
     Route: 048
     Dates: start: 19990301
  2. LIPOBAY (CERIVASTATIN SODIUM) [Suspect]
     Indication: HYPERCHOLESTEROLAEMIA
     Dosage: ORAL
     Route: 048
     Dates: start: 19990301

REACTIONS (4)
  - CARDIAC FAILURE [None]
  - MUSCLE INJURY [None]
  - PARALYSIS [None]
  - RENAL FAILURE [None]
